FAERS Safety Report 4601526-8 (Version None)
Quarter: 2005Q1

REPORT INFORMATION
  Report Type: 
  Country: None (occurrence: None)
  Receive Date: 20050127
  Receipt Date: 20040922
  Transmission Date: 20050727
  Serious: Yes (Hospitalization)
  Sender: FDA-Public Use
  Company Number: 200317445US

PATIENT
  Age: 83 Year
  Sex: Male

DRUGS (1)
  1. AMARYL [Suspect]
     Dosage: 4 MG BID PO
     Route: 048
     Dates: start: 20030601

REACTIONS (6)
  - ASTHENIA [None]
  - BALANCE DISORDER [None]
  - BLOOD GLUCOSE FLUCTUATION [None]
  - DIFFICULTY IN WALKING [None]
  - HYPOGLYCAEMIC SEIZURE [None]
  - LOSS OF CONSCIOUSNESS [None]
